FAERS Safety Report 10022251 (Version 5)
Quarter: 2015Q2

REPORT INFORMATION
  Report Type: Spontaneous
  Country: US (occurrence: US)
  Receive Date: 20140319
  Receipt Date: 20150528
  Transmission Date: 20150821
  Serious: Yes (Hospitalization, Other)
  Sender: FDA-Public Use
  Company Number: US-SANOFI-AVENTIS-2012SA028589

PATIENT
  Age: 76 Year
  Sex: Male

DRUGS (11)
  1. METOPROLOL TARTRATE. [Concomitant]
     Active Substance: METOPROLOL TARTRATE
  2. ZOLPIDEM TARTRATE. [Concomitant]
     Active Substance: ZOLPIDEM TARTRATE
  3. ASPIRIN. [Concomitant]
     Active Substance: ASPIRIN
     Dates: start: 20100224, end: 20100328
  4. ROPINIROLE. [Concomitant]
     Active Substance: ROPINIROLE
  5. WARFARIN [Concomitant]
     Active Substance: WARFARIN
     Dates: start: 200707
  6. PLAVIX [Suspect]
     Active Substance: CLOPIDOGREL BISULFATE
     Indication: CEREBROVASCULAR ACCIDENT
     Route: 048
     Dates: start: 20100224, end: 20100328
  7. KLOR-CON [Concomitant]
     Active Substance: POTASSIUM CHLORIDE
  8. LISINOPRIL. [Concomitant]
     Active Substance: LISINOPRIL
  9. MEVACOR [Concomitant]
     Active Substance: LOVASTATIN
  10. LASIX [Concomitant]
     Active Substance: FUROSEMIDE
  11. NEURONTIN [Concomitant]
     Active Substance: GABAPENTIN

REACTIONS (5)
  - Rectal haemorrhage [Recovered/Resolved]
  - Multiple injuries [Unknown]
  - Internal haemorrhage [Recovered/Resolved]
  - Gastrointestinal haemorrhage [Recovered/Resolved]
  - Haematochezia [Recovered/Resolved]

NARRATIVE: CASE EVENT DATE: 20100320
